FAERS Safety Report 4921469-X (Version None)
Quarter: 2006Q1

REPORT INFORMATION
  Report Type: 
  Country: None (occurrence: None)
  Receive Date: 20060222
  Receipt Date: 20060222
  Transmission Date: 20060701
  Serious: Yes (Hospitalization)
  Sender: FDA-Public Use
  Company Number: None

PATIENT
  Sex: Male

DRUGS (2)
  1. GEMCITABINE [Suspect]
     Indication: COLON CANCER
     Dosage: 1460MG DAY 1 IV
     Route: 042
     Dates: start: 20060214
  2. OXALIPLATIN [Suspect]
     Indication: COLON CANCER
     Dosage: 146 MG DAY 2 IV
     Route: 042
     Dates: start: 20060215

REACTIONS (6)
  - CATHETER SITE ERYTHEMA [None]
  - CATHETER SITE INFLAMMATION [None]
  - OEDEMA PERIPHERAL [None]
  - PAIN IN EXTREMITY [None]
  - PANCREATITIS [None]
  - PROCTALGIA [None]
